FAERS Safety Report 7201395-6 (Version None)
Quarter: 2010Q4

REPORT INFORMATION
  Report Type: 
  Country: None (occurrence: None)
  Receive Date: 20101215
  Receipt Date: 20101203
  Transmission Date: 20110411
  Serious: Yes (Other)
  Sender: FDA-Public Use
  Company Number: 019651

PATIENT
  Sex: Female

DRUGS (2)
  1. VIMPAT [Suspect]
     Indication: PARTIAL SEIZURES
     Dosage: (200 MG BID ORAL)
     Route: 048
     Dates: start: 20090801, end: 20100601
  2. CLOBAZAM [Concomitant]

REACTIONS (3)
  - CONVULSION [None]
  - DRUG EXPOSURE DURING PREGNANCY [None]
  - UNINTENDED PREGNANCY [None]
